FAERS Safety Report 25282603 (Version 2)
Quarter: 2025Q2

REPORT INFORMATION
  Report Type: Spontaneous
  Country: IT (occurrence: IT)
  Receive Date: 20250508
  Receipt Date: 20250606
  Transmission Date: 20250717
  Serious: Yes (Hospitalization, Other)
  Sender: ALEXION PHARMACEUTICALS
  Company Number: IT-ASTRAZENECA-202505GLO002420IT

PATIENT
  Age: 56 Year

DRUGS (2)
  1. FULVESTRANT [Suspect]
     Active Substance: FULVESTRANT
     Indication: Breast cancer metastatic
     Route: 065
  2. FULVESTRANT [Suspect]
     Active Substance: FULVESTRANT

REACTIONS (3)
  - Recall phenomenon [Recovering/Resolving]
  - Rash erythematous [Unknown]
  - Hypocalcaemia [Unknown]
